FAERS Safety Report 9820502 (Version 1)
Quarter: 2014Q1

REPORT INFORMATION
  Report Type: Spontaneous
  Country: US (occurrence: None)
  Receive Date: 20140114
  Receipt Date: 20140114
  Transmission Date: 20141002
  Serious: Yes (Hospitalization)
  Sender: FDA-Public Use
  Company Number: SYM-2014-14652

PATIENT
  Age: 64 Year
  Sex: Male

DRUGS (5)
  1. FLAGYL [Suspect]
     Dosage: (NOT OTHERWISE SPECIFIED)
     Route: 042
     Dates: start: 20130821, end: 20130821
  2. CELOCURINE [Suspect]
     Dosage: (NOT OTHERWISE SPECIFIED)
     Dates: start: 20130821, end: 20130821
  3. PROPOFOL [Suspect]
     Dosage: (NOT OTHERWISE SPECIFIED)
     Route: 042
     Dates: start: 20130821, end: 20130821
  4. SUFENTANIL [Suspect]
     Dosage: (NOT OTHERWISE SPECIFIED)
     Route: 042
  5. CEFOTAXIME [Suspect]
     Dosage: (NOT OTHERWISE SPECIFIED)
     Route: 042
     Dates: start: 20130821, end: 20130821

REACTIONS (2)
  - Anaphylactic shock [None]
  - Erythema [None]
